FAERS Safety Report 21555636 (Version 1)
Quarter: 2022Q4

REPORT INFORMATION
  Report Type: Spontaneous
  Country: US (occurrence: None)
  Receive Date: 20221103
  Receipt Date: 20221103
  Transmission Date: 20230113
  Serious: Yes (Other)
  Sender: FDA-Public Use
  Company Number: None

PATIENT
  Age: 66 Year
  Sex: Male
  Weight: 70.65 kg

DRUGS (1)
  1. COSENTYX [Suspect]
     Active Substance: SECUKINUMAB
     Indication: Psoriasis
     Dates: start: 20190808, end: 20220320

REACTIONS (2)
  - Gastrointestinal disorder [None]
  - Proctalgia [None]
